FAERS Safety Report 9498353 (Version 5)
Quarter: 2014Q2

REPORT INFORMATION
  Report Type: Report from Study
  Country: JP (occurrence: JP)
  Receive Date: 20130904
  Receipt Date: 20140606
  Transmission Date: 20141212
  Serious: Yes (Death, Life-Threatening, Hospitalization, Other)
  Sender: FDA-Public Use
  Company Number: JP-CELGENEUS-087-50794-13073654

PATIENT
  Age: 87 Year
  Sex: Male
  Weight: 63 kg

DRUGS (36)
  1. VIDAZA [Suspect]
     Indication: MYELODYSPLASTIC SYNDROME
     Dosage: 75 MILLIGRAM/SQ. METER
     Route: 041
     Dates: start: 20130227, end: 20130306
  2. VIDAZA [Suspect]
     Dosage: 75 MILLIGRAM/SQ. METER
     Route: 041
     Dates: start: 20130419, end: 20130425
  3. VIDAZA [Suspect]
     Dosage: 75 MILLIGRAM/SQ. METER
     Route: 041
     Dates: start: 20130603, end: 20130607
  4. LANSOPRAZOLE [Concomitant]
     Indication: PRODUCT USED FOR UNKNOWN INDICATION
     Route: 065
     Dates: start: 20121012, end: 20130724
  5. HALTHROW [Concomitant]
     Indication: PRODUCT USED FOR UNKNOWN INDICATION
     Route: 065
     Dates: start: 20121012
  6. SIGMART [Concomitant]
     Indication: PRODUCT USED FOR UNKNOWN INDICATION
     Route: 065
     Dates: start: 20121012, end: 20130724
  7. ETIZOLAM [Concomitant]
     Indication: PRODUCT USED FOR UNKNOWN INDICATION
     Route: 065
     Dates: start: 20121024, end: 20130607
  8. LEBENIN-S [Concomitant]
     Indication: PRODUCT USED FOR UNKNOWN INDICATION
     Route: 065
     Dates: start: 20121029, end: 20130607
  9. NOVAMIN [Concomitant]
     Indication: PRODUCT USED FOR UNKNOWN INDICATION
     Route: 065
     Dates: start: 20130226, end: 20130306
  10. NOVAMIN [Concomitant]
     Route: 065
     Dates: start: 20130418, end: 20130426
  11. NOVAMIN [Concomitant]
     Route: 065
     Dates: start: 20130602, end: 20130610
  12. URALYT [Concomitant]
     Indication: PRODUCT USED FOR UNKNOWN INDICATION
     Route: 065
     Dates: start: 20130226, end: 20130306
  13. URALYT [Concomitant]
     Route: 065
     Dates: start: 20130418, end: 20130426
  14. URALYT [Concomitant]
     Route: 065
     Dates: start: 20130602, end: 20130610
  15. ZYLORIC [Concomitant]
     Indication: PRODUCT USED FOR UNKNOWN INDICATION
     Route: 065
     Dates: start: 20130226, end: 20130306
  16. ZYLORIC [Concomitant]
     Route: 065
     Dates: start: 20130418, end: 20130426
  17. ZYLORIC [Concomitant]
     Route: 065
     Dates: start: 20130602, end: 20130610
  18. NASEA [Concomitant]
     Indication: PRODUCT USED FOR UNKNOWN INDICATION
     Route: 065
     Dates: start: 20130227, end: 20130306
  19. NASEA [Concomitant]
     Route: 065
     Dates: start: 20130419, end: 20130426
  20. NASEA [Concomitant]
     Route: 065
     Dates: start: 20130603, end: 20130607
  21. METLIGINE [Concomitant]
     Indication: PRODUCT USED FOR UNKNOWN INDICATION
     Route: 065
     Dates: start: 20130301, end: 20130308
  22. METLIGINE [Concomitant]
     Route: 065
     Dates: start: 20130314, end: 20130724
  23. GEBEN [Concomitant]
     Indication: PRODUCT USED FOR UNKNOWN INDICATION
     Route: 065
     Dates: start: 20130311, end: 20130418
  24. ZOSYN [Concomitant]
     Indication: PRODUCT USED FOR UNKNOWN INDICATION
     Route: 065
     Dates: start: 20130312, end: 20130322
  25. ZOSYN [Concomitant]
     Route: 065
     Dates: start: 20130610, end: 20130623
  26. NEUTROGIN [Concomitant]
     Indication: PRODUCT USED FOR UNKNOWN INDICATION
     Route: 065
     Dates: start: 20130312, end: 20130321
  27. NEUTROGIN [Concomitant]
     Route: 065
     Dates: start: 20130426, end: 20130430
  28. NEUTROGIN [Concomitant]
     Route: 065
     Dates: start: 20130712, end: 20130717
  29. CALONAL [Concomitant]
     Indication: PRODUCT USED FOR UNKNOWN INDICATION
     Route: 065
     Dates: start: 20130312, end: 20130328
  30. CEFXONE [Concomitant]
     Indication: PRODUCT USED FOR UNKNOWN INDICATION
     Route: 065
     Dates: start: 20130425, end: 20130501
  31. ITRIZOLE [Concomitant]
     Indication: PRODUCT USED FOR UNKNOWN INDICATION
     Route: 065
     Dates: start: 20130617, end: 20130717
  32. RISPERIDONE ODT [Concomitant]
     Indication: PRODUCT USED FOR UNKNOWN INDICATION
     Route: 065
     Dates: start: 20130712, end: 20130724
  33. CODEINE PHOSPHATE HYDRATE [Concomitant]
     Indication: PRODUCT USED FOR UNKNOWN INDICATION
     Route: 065
     Dates: start: 20130716, end: 20130724
  34. RASENAZOLIN [Concomitant]
     Indication: PRODUCT USED FOR UNKNOWN INDICATION
     Route: 065
     Dates: start: 20130717, end: 20130724
  35. SULBACILLIN [Concomitant]
     Indication: PRODUCT USED FOR UNKNOWN INDICATION
     Route: 065
     Dates: start: 20130725, end: 20130731
  36. TAMSULOSIN HYDROCHLORIDE [Concomitant]
     Indication: PRODUCT USED FOR UNKNOWN INDICATION
     Route: 065
     Dates: start: 20121102, end: 20130724

REACTIONS (13)
  - Neutropenia [Fatal]
  - Pneumonia [Fatal]
  - Pneumonia [Recovered/Resolved]
  - Delirium [Recovered/Resolved]
  - Neutropenia [Recovered/Resolved]
  - Anaemia [Unknown]
  - Thrombocytopenia [Recovered/Resolved]
  - Leukopenia [Recovered/Resolved]
  - Leukopenia [Recovered/Resolved]
  - Thrombocytopenia [Recovered/Resolved]
  - Thermal burn [Recovered/Resolved]
  - Enteritis infectious [Recovered/Resolved]
  - Cough [Recovered/Resolved]
